FAERS Safety Report 9556011 (Version 2)
Quarter: 2013Q3

REPORT INFORMATION
  Report Type: Spontaneous
  Country: BE (occurrence: BE)
  Receive Date: 20130926
  Receipt Date: 20130926
  Transmission Date: 20140515
  Serious: Yes (Hospitalization)
  Sender: FDA-Public Use
  Company Number: BE-BAYER-1199906055

PATIENT
  Age: 52 Year
  Sex: Male

DRUGS (2)
  1. CIPROXINE [Suspect]
     Indication: PROSTATITIS
     Dosage: 1000 MG (DAILY DOSE), , ORAL
     Route: 048
     Dates: start: 19990528, end: 19990604
  2. FLUOXETINE HYDROCHLORIDE [Concomitant]
     Indication: DEPRESSION
     Dosage: 20 MG (DAILY DOSE), , ORAL
     Route: 048

REACTIONS (5)
  - Polyneuropathy [None]
  - Guillain-Barre syndrome [None]
  - Movement disorder [None]
  - Neuralgia [None]
  - Sensory disturbance [None]
